FAERS Safety Report 8299654-1 (Version None)
Quarter: 2012Q2

REPORT INFORMATION
  Report Type: 
  Country: None (occurrence: None)
  Receive Date: 20120419
  Receipt Date: 20120413
  Transmission Date: 20120825
  Serious: Yes (Other)
  Sender: FDA-Public Use
  Company Number: US-ELI_LILLY_AND_COMPANY-US201202006466

PATIENT
  Sex: Female

DRUGS (2)
  1. FORTEO [Suspect]
     Dosage: 20 UG, QD
  2. FORTEO [Suspect]
     Indication: OSTEOPOROSIS
     Dosage: 20 UG, QD

REACTIONS (4)
  - ASTHENIA [None]
  - ABDOMINAL ADHESIONS [None]
  - NAUSEA [None]
  - INTESTINAL MASS [None]
